FAERS Safety Report 21931127 (Version 1)
Quarter: 2023Q1

REPORT INFORMATION
  Report Type: Spontaneous
  Country: FR (occurrence: FR)
  Receive Date: 20230131
  Receipt Date: 20230131
  Transmission Date: 20230418
  Serious: Yes (Hospitalization, Other)
  Sender: FDA-Public Use
  Company Number: FR-SA-2023SA033010

PATIENT
  Age: 57 Year
  Sex: Male

DRUGS (4)
  1. DUPILUMAB [Suspect]
     Active Substance: DUPILUMAB
     Indication: Asthma
     Dosage: UNK
     Dates: start: 20211130, end: 20220309
  2. PREDNISOLONE [Concomitant]
     Active Substance: PREDNISOLONE
     Indication: Asthma
     Dosage: 30 MG, QD
     Route: 048
     Dates: start: 2008, end: 2021
  3. PREDNISOLONE [Concomitant]
     Active Substance: PREDNISOLONE
     Indication: Eosinophilic granulomatosis with polyangiitis
     Dosage: 10 MG, QD
     Route: 048
     Dates: start: 2021, end: 2022
  4. PREDNISOLONE [Concomitant]
     Active Substance: PREDNISOLONE
     Dosage: 60 MG, QD
     Route: 048
     Dates: start: 202203

REACTIONS (10)
  - Eosinophilic granulomatosis with polyangiitis [Recovered/Resolved]
  - Eosinophilia [Recovered/Resolved]
  - Unmasking of previously unidentified disease [Recovered/Resolved]
  - Sinusitis [Recovered/Resolved]
  - Nodular rash [Recovered/Resolved]
  - Rhinitis [Recovered/Resolved]
  - Rash erythematous [Recovered/Resolved]
  - Lung consolidation [Recovered/Resolved]
  - Lymphocytic infiltration [Recovered/Resolved]
  - Hypersensitivity vasculitis [Recovered/Resolved]

NARRATIVE: CASE EVENT DATE: 20220301
